FAERS Safety Report 22872227 (Version 8)
Quarter: 2024Q2

REPORT INFORMATION
  Report Type: Report from Study
  Country: US (occurrence: US)
  Receive Date: 20230828
  Receipt Date: 20240523
  Transmission Date: 20240715
  Serious: Yes (Hospitalization, Other)
  Sender: FDA-Public Use
  Company Number: US-UCBSA-2023041771

PATIENT
  Age: 73 Year
  Sex: Female
  Weight: 186 kg

DRUGS (5)
  1. LACOSAMIDE [Suspect]
     Active Substance: LACOSAMIDE
     Indication: Epilepsy
     Dosage: 200 AND 50MG, 2X/DAY (BID) AM AND PM
     Route: 048
  2. LACOSAMIDE [Suspect]
     Active Substance: LACOSAMIDE
     Indication: Seizure
     Dosage: 50MG + 200MG-1 TAB EACH TWICE DAILY
     Route: 048
  3. LACOSAMIDE [Suspect]
     Active Substance: LACOSAMIDE
     Dosage: 50 MILLIGRAM, 2X/DAY (BID)
  4. LACOSAMIDE [Suspect]
     Active Substance: LACOSAMIDE
     Dosage: 200 MILLIGRAM AND 50 MILLIGRAM, 2X/DAY (BID)
     Route: 048
  5. LEVETIRACETAM [Concomitant]
     Active Substance: LEVETIRACETAM
     Indication: Seizure
     Dosage: 750 MILLIGRAM, 2X/DAY (BID), 3 TAB AM AND 3 TAB PM
     Route: 048

REACTIONS (10)
  - Seizure [Not Recovered/Not Resolved]
  - Change in seizure presentation [Unknown]
  - Upper limb fracture [Recovering/Resolving]
  - Dementia [Not Recovered/Not Resolved]
  - Memory impairment [Not Recovered/Not Resolved]
  - Chest injury [Not Recovered/Not Resolved]
  - Generalised tonic-clonic seizure [Not Recovered/Not Resolved]
  - Wrist fracture [Not Recovered/Not Resolved]
  - Overdose [Unknown]
  - Product availability issue [Unknown]

NARRATIVE: CASE EVENT DATE: 20230719
